FAERS Safety Report 5947579-6 (Version None)
Quarter: 2008Q4

REPORT INFORMATION
  Report Type: 
  Country: None (occurrence: None)
  Receive Date: 20081110
  Receipt Date: 20081029
  Transmission Date: 20090506
  Serious: Yes (Hospitalization)
  Sender: FDA-Public Use
  Company Number: HU-AMGEN-UK306184

PATIENT
  Sex: Male

DRUGS (4)
  1. PANITUMUMAB [Suspect]
     Indication: SQUAMOUS CELL CARCINOMA
     Route: 065
     Dates: start: 20080709
  2. PANITUMUMAB - STUDY PROCEDURE [Suspect]
     Indication: SQUAMOUS CELL CARCINOMA
  3. CISPLATIN [Suspect]
     Route: 042
     Dates: start: 20080709, end: 20080821
  4. RADIATION THERAPY [Suspect]
     Route: 050
     Dates: start: 20080709, end: 20080902

REACTIONS (2)
  - ANAEMIA [None]
  - FEBRILE NEUTROPENIA [None]
